FAERS Safety Report 14590710 (Version 3)
Quarter: 2018Q2

REPORT INFORMATION
  Report Type: Report from Study
  Country: None (occurrence: ES)
  Receive Date: 20180301
  Receipt Date: 20180427
  Transmission Date: 20180711
  Serious: Yes (Other)
  Sender: FDA-Public Use
  Company Number: ES-BIOVITRUM-2017ES0272

PATIENT
  Age: 13 Year
  Sex: Female
  Weight: 46 kg

DRUGS (7)
  1. ORFADIN [Suspect]
     Active Substance: NITISINONE
     Indication: TYROSINAEMIA
     Route: 048
     Dates: start: 20050115, end: 20100725
  2. ORFADIN [Suspect]
     Active Substance: NITISINONE
     Route: 048
     Dates: start: 20130304, end: 20151201
  3. ORFADIN [Suspect]
     Active Substance: NITISINONE
     Route: 048
     Dates: start: 20151202, end: 20160517
  4. ORFADIN [Suspect]
     Active Substance: NITISINONE
     Route: 048
     Dates: start: 20160518
  5. ORFADIN [Suspect]
     Active Substance: NITISINONE
     Route: 048
     Dates: start: 20121010, end: 20130304
  6. ORFADIN [Suspect]
     Active Substance: NITISINONE
     Route: 048
     Dates: start: 20100726, end: 20111026
  7. ORFADIN [Suspect]
     Active Substance: NITISINONE
     Route: 048
     Dates: start: 20111027, end: 20121009

REACTIONS (2)
  - Hepatocellular carcinoma [Recovering/Resolving]
  - Succinylacetone increased [Unknown]

NARRATIVE: CASE EVENT DATE: 20170620
